FAERS Safety Report 7535677-5 (Version None)
Quarter: 2011Q2

REPORT INFORMATION
  Report Type: 
  Country: None (occurrence: None)
  Receive Date: 20110609
  Receipt Date: 20110526
  Transmission Date: 20111010
  Serious: Yes (Hospitalization)
  Sender: FDA-Public Use
  Company Number: JP-BAYER-2011-046108

PATIENT
  Age: 77 Year
  Sex: Female

DRUGS (21)
  1. ALDACTONE [Concomitant]
     Dosage: DAILY DOSE 25 MG
     Route: 048
     Dates: start: 20101122, end: 20110509
  2. PURSENNID [Concomitant]
     Dosage: DAILY DOSE 12 MG
     Route: 048
     Dates: start: 20110510
  3. MONILAC [Concomitant]
     Dosage: UNK
     Route: 048
     Dates: start: 20110426
  4. URSO 250 [Concomitant]
     Dosage: DAILY DOSE 600 MG
     Route: 048
     Dates: start: 20110224
  5. PURSENNID [Concomitant]
     Dosage: DAILY DOSE 12 MG
     Route: 048
     Dates: start: 20110427, end: 20110427
  6. LASIX [Concomitant]
     Dosage: DAILY DOSE 20 MG
     Route: 048
     Dates: start: 20110224, end: 20110523
  7. SORAFENIB (RAF KINASE INHIBITOR) [Suspect]
     Indication: HEPATIC NEOPLASM MALIGNANT
     Dosage: 200 MG, BID
     Route: 048
     Dates: start: 20110330, end: 20110418
  8. PURSENNID [Concomitant]
     Dosage: DAILY DOSE 24 MG
     Route: 048
     Dates: start: 20110428, end: 20110509
  9. LAC B [Concomitant]
     Dosage: DAILY DOSE 3 G
     Route: 048
     Dates: start: 20110224
  10. LIVACT [Concomitant]
     Dosage: DAILY DOSE 8.3 G
     Route: 048
     Dates: start: 20110401
  11. SELBEX [Concomitant]
     Dosage: DAILY DOSE 150 MG
     Route: 048
     Dates: start: 20110224
  12. OMEPRAZOLE [Concomitant]
     Dosage: DAILY DOSE 10 MG
     Route: 048
     Dates: start: 20100928
  13. PURSENNID [Concomitant]
     Dosage: DAILY DOSE 24 MG
     Route: 048
     Dates: start: 20110224
  14. PURSENNID [Concomitant]
     Dosage: DAILY DOSE 12 MG
     Route: 048
     Dates: start: 20110510
  15. MENTAX [Concomitant]
     Dosage: UNK
     Route: 061
     Dates: start: 20110404
  16. LOXONIN [Concomitant]
     Dosage: DAILY DOSE 180 MG
     Route: 048
     Dates: start: 20110510
  17. ALDACTONE [Concomitant]
     Dosage: DAILY DOSE 100 MG
     Route: 048
     Dates: start: 20110510
  18. ALFAROL [Concomitant]
     Dosage: DAILY DOSE 1 ?G
     Route: 048
     Dates: start: 20100224
  19. FOIPAN [Concomitant]
     Dosage: DAILY DOSE 300 MG
     Route: 048
     Dates: start: 20110224
  20. KETOPROFEN [Concomitant]
     Dosage: UNK
     Route: 062
     Dates: start: 20110406
  21. LASIX [Concomitant]
     Dosage: DAILY DOSE 40 MG
     Route: 048
     Dates: start: 20110524

REACTIONS (2)
  - HEPATIC ENCEPHALOPATHY [None]
  - DECREASED APPETITE [None]
